FAERS Safety Report 10422098 (Version 1)
Quarter: 2014Q3

REPORT INFORMATION
  Report Type: Spontaneous
  Country: US (occurrence: US)
  Receive Date: 20140901
  Receipt Date: 20140901
  Transmission Date: 20150326
  Serious: Yes (Other)
  Sender: FDA-Public Use
  Company Number: US-SA-2014SA025992

PATIENT
  Age: 73 Year
  Sex: Female
  Weight: 190 kg

DRUGS (5)
  1. ALL OTHER THERAPEUTIC PRODUCTS [Concomitant]
     Active Substance: UNSPECIFIED INGREDIENT
     Indication: INSOMNIA
     Dates: start: 201312
  2. AVAPRO [Suspect]
     Active Substance: IRBESARTAN
     Indication: CARDIAC FIBRILLATION
     Route: 048
     Dates: start: 20131003
  3. COUMADIN [Suspect]
     Active Substance: WARFARIN SODIUM
     Indication: PRODUCT USED FOR UNKNOWN INDICATION
     Route: 065
  4. AVAPRO [Suspect]
     Active Substance: IRBESARTAN
     Indication: CARDIAC FIBRILLATION
     Route: 048
  5. AVAPRO [Suspect]
     Active Substance: IRBESARTAN
     Indication: CARDIAC FIBRILLATION
     Route: 048
     Dates: end: 20140226

REACTIONS (6)
  - Palpitations [Recovered/Resolved]
  - Hyperhidrosis [Recovered/Resolved]
  - Drug ineffective [Unknown]
  - Blood pressure increased [Recovered/Resolved]
  - Atrial fibrillation [Recovered/Resolved]
  - Wrong technique in drug usage process [Unknown]

NARRATIVE: CASE EVENT DATE: 20140211
